FAERS Safety Report 7049223-6 (Version None)
Quarter: 2010Q4

REPORT INFORMATION
  Report Type: 
  Country: None (occurrence: None)
  Receive Date: 20101018
  Receipt Date: 20101011
  Transmission Date: 20110411
  Serious: Yes (Hospitalization)
  Sender: FDA-Public Use
  Company Number: US-BAXTER-2010BH024832

PATIENT
  Age: 5 Month
  Sex: Male

DRUGS (2)
  1. DIANEAL [Suspect]
     Indication: PERITONEAL DIALYSIS
     Route: 033
     Dates: start: 20100422
  2. DIANEAL [Suspect]
     Route: 033
     Dates: start: 20100422

REACTIONS (1)
  - HYPERTENSION [None]
